FAERS Safety Report 15365359 (Version 3)
Quarter: 2018Q3

REPORT INFORMATION
  Report Type: Spontaneous
  Country: US (occurrence: US)
  Receive Date: 20180910
  Receipt Date: 20180917
  Transmission Date: 20181010
  Serious: No
  Sender: FDA-Public Use
  Company Number: US-PFIZER INC-2018362272

PATIENT
  Age: 70 Year
  Sex: Male

DRUGS (1)
  1. SUTENT [Suspect]
     Active Substance: SUNITINIB MALATE
     Indication: RENAL CANCER
     Dosage: 50 MG, CYCLIC (FOR 14 DAYS ON THEN OFF FOR 7 DAYS EVERY 21 DAYS)
     Route: 048
     Dates: start: 201807

REACTIONS (4)
  - Bone pain [Not Recovered/Not Resolved]
  - Joint swelling [Unknown]
  - Condition aggravated [Not Recovered/Not Resolved]
  - Peripheral swelling [Unknown]

NARRATIVE: CASE EVENT DATE: 2018
